FAERS Safety Report 7460532-9 (Version None)
Quarter: 2011Q2

REPORT INFORMATION
  Report Type: 
  Country: None (occurrence: None)
  Receive Date: 20110505
  Receipt Date: 20110427
  Transmission Date: 20111010
  Serious: Yes (Other)
  Sender: FDA-Public Use
  Company Number: PHHY2011GB33673

PATIENT
  Sex: Female

DRUGS (6)
  1. CLONAZEPAM [Suspect]
     Indication: EPILEPSY
     Dosage: 2.5 MG, DAILY
     Route: 048
  2. SEROTONIN ANTAGONISTS [Concomitant]
     Dosage: UNK UKN, UNK
  3. WARFARIN [Concomitant]
  4. BISOPROLOL [Suspect]
     Dosage: 2.5 MG, QD
     Route: 048
  5. BISOPROLOL [Suspect]
     Indication: LONG QT SYNDROME
     Dosage: 1.25 MG, QD
     Route: 048
  6. BISOPROLOL [Suspect]
     Dosage: 1.25 MG, QD
     Route: 048

REACTIONS (20)
  - SUICIDAL IDEATION [None]
  - NIGHTMARE [None]
  - DISTURBANCE IN ATTENTION [None]
  - SOMNOLENCE [None]
  - AMNESIA [None]
  - HEART RATE INCREASED [None]
  - INTENTIONAL OVERDOSE [None]
  - WRIST FRACTURE [None]
  - FATIGUE [None]
  - BRADYPHRENIA [None]
  - MUSCLE SPASMS [None]
  - PULMONARY EMBOLISM [None]
  - DRUG INEFFECTIVE [None]
  - CONFUSIONAL STATE [None]
  - HYPOAESTHESIA [None]
  - GAIT DISTURBANCE [None]
  - EPILEPSY [None]
  - FALL [None]
  - BLOOD PRESSURE INCREASED [None]
  - TREMOR [None]
